FAERS Safety Report 13427862 (Version 9)
Quarter: 2017Q3

REPORT INFORMATION
  Report Type: Report from Study
  Country: US (occurrence: US)
  Receive Date: 20170411
  Receipt Date: 20170919
  Transmission Date: 20171127
  Serious: Yes (Other)
  Sender: FDA-Public Use
  Company Number: US-PFIZER INC-2017150318

PATIENT
  Age: 48 Year
  Sex: Female

DRUGS (1)
  1. IBRANCE [Suspect]
     Active Substance: PALBOCICLIB
     Indication: BREAST CANCER METASTATIC
     Dosage: 125 MG, CYCLIC(DAILY/21 DAYS ON AND 7 DAYS OFF)
     Route: 048
     Dates: start: 20170323

REACTIONS (11)
  - White blood cell count decreased [Recovered/Resolved]
  - Diarrhoea [Recovered/Resolved]
  - Glossodynia [Recovered/Resolved]
  - Furuncle [Recovering/Resolving]
  - Cellulitis [Recovered/Resolved]
  - Lip swelling [Unknown]
  - Fatigue [Recovering/Resolving]
  - Bone pain [Unknown]
  - Pain [Recovered/Resolved]
  - Arthralgia [Unknown]
  - Lymphadenopathy [Recovering/Resolving]

NARRATIVE: CASE EVENT DATE: 2017
